FAERS Safety Report 7944511-0 (Version None)
Quarter: 2011Q4

REPORT INFORMATION
  Report Type: 
  Country: None (occurrence: None)
  Receive Date: 20111114
  Receipt Date: 20110902
  Transmission Date: 20120403
  Serious: No
  Sender: FDA-Public Use
  Company Number: 1000023457

PATIENT
  Age: 46 Year
  Sex: Female

DRUGS (8)
  1. METOPROLOL SUCCINATE [Concomitant]
  2. CYMBALTA (DULOXETINE HYDROCHLORIDE) (DULOXETINE HYDROCHLORIDE) [Concomitant]
  3. LISINOPRIL [Concomitant]
  4. LORTAB (ACETAMINOPHEN + HYDROCODONE) (ACETAMINOPHEN + HYDROCODONE) [Concomitant]
  5. MIRAPEX (PRAMIPEXOLE DIHYDROCHLORIDE) (PRAMIPEXOLE DIHYDROCHLORIDE) [Concomitant]
  6. SYNTHROID (LEVOTHYROXINE SODIUM) (LEVOTHYROXINE SODIUM) [Concomitant]
  7. SAVELLA [Suspect]
     Indication: FIBROMYALGIA
     Dosage: SEE IMAGE
     Route: 048
     Dates: start: 20110701, end: 20110701
  8. PLAVIX (CLOPIDOGREL BISULFATE) (CLOPIDOGREL BISULFATE) [Concomitant]

REACTIONS (2)
  - SEDATION [None]
  - DYSARTHRIA [None]
